FAERS Safety Report 16473542 (Version 1)
Quarter: 2019Q2

REPORT INFORMATION
  Report Type: Spontaneous
  Country: US (occurrence: US)
  Receive Date: 20190625
  Receipt Date: 20190625
  Transmission Date: 20190711
  Serious: No
  Sender: FDA-Public Use
  Company Number: US-AMGEN-USASP2019098504

PATIENT
  Age: 24 Year
  Sex: Female

DRUGS (1)
  1. PROLIA [Suspect]
     Active Substance: DENOSUMAB
     Indication: GIANT CELL EPULIS
     Dosage: 60 MILLIGRAM
     Route: 065
     Dates: start: 201408, end: 201507

REACTIONS (2)
  - Off label use [Unknown]
  - Rash [Unknown]
